FAERS Safety Report 7162969-4 (Version None)
Quarter: 2010Q4

REPORT INFORMATION
  Report Type: 
  Country: None (occurrence: None)
  Receive Date: 20101215
  Receipt Date: 20100204
  Transmission Date: 20110411
  Serious: Yes (Death, Other)
  Sender: FDA-Public Use
  Company Number: DE-PFIZER INC-2010000252

PATIENT
  Age: 96 Year
  Sex: Female
  Weight: 160 kg

DRUGS (6)
  1. LYRICA [Suspect]
     Indication: MUSCLE SPASMS
     Dosage: 150 MG/DAY
     Route: 048
     Dates: start: 20091224, end: 20091224
  2. LYRICA [Suspect]
     Indication: POLYNEUROPATHY
     Dosage: 300 MG, 1X/DAY
     Route: 048
     Dates: start: 20091225
  3. MORPHINE [Concomitant]
     Indication: MUSCLE SPASMS
     Dosage: UNK
     Dates: start: 20091201, end: 20091201
  4. DICLOFENAC [Concomitant]
     Indication: MUSCLE SPASMS
  5. TRAMAL [Concomitant]
     Indication: MUSCLE SPASMS
  6. VALORON N [Concomitant]
     Indication: MUSCLE SPASMS
     Dosage: UNK
     Dates: start: 20091208

REACTIONS (6)
  - DRY MOUTH [None]
  - ORGAN FAILURE [None]
  - PNEUMONIA [None]
  - SPEECH DISORDER [None]
  - VIRAL INFECTION [None]
  - VISUAL FIELD DEFECT [None]
